FAERS Safety Report 12546492 (Version 1)
Quarter: 2016Q3

REPORT INFORMATION
  Report Type: Spontaneous
  Country: JP (occurrence: JP)
  Receive Date: 20160711
  Receipt Date: 20160711
  Transmission Date: 20161109
  Serious: Yes (Hospitalization)
  Sender: FDA-Public Use
  Company Number: JP-CONCORDIA PHARMACEUTICALS INC.-CO-ZO-US-2016-078

PATIENT
  Age: 32 Year
  Sex: Male

DRUGS (16)
  1. DEPAKENE [Suspect]
     Active Substance: VALPROIC ACID
     Route: 048
     Dates: start: 20151209
  2. MIDAZOLAM [Suspect]
     Active Substance: MIDAZOLAM\MIDAZOLAM HYDROCHLORIDE
     Dosage: 60 MG
     Route: 042
     Dates: start: 20151120, end: 20151124
  3. MIDAZOLAM [Suspect]
     Active Substance: MIDAZOLAM\MIDAZOLAM HYDROCHLORIDE
     Dosage: 60 MG
     Route: 042
     Dates: start: 20151126, end: 20151206
  4. ESCRE [Concomitant]
     Indication: SEDATIVE THERAPY
     Route: 054
     Dates: start: 20151124, end: 20151125
  5. ZONEGRAN [Suspect]
     Active Substance: ZONISAMIDE
     Route: 048
     Dates: start: 20151209
  6. TAKEPRON [Concomitant]
     Active Substance: LANSOPRAZOLE
     Indication: GASTRIC ULCER
     Route: 048
     Dates: start: 20151118, end: 20151124
  7. ISOZOL [Concomitant]
     Active Substance: THIAMYLAL SODIUM
     Indication: ANAESTHESIA PROCEDURE
     Route: 042
     Dates: start: 20151120, end: 20151120
  8. DIAPP [Concomitant]
     Active Substance: DIAZEPAM
     Indication: SEDATIVE THERAPY
     Route: 054
     Dates: start: 20151124, end: 20151125
  9. ZOSYN [Concomitant]
     Active Substance: PIPERACILLIN SODIUM\TAZOBACTAM SODIUM
     Indication: INFECTION
     Route: 042
     Dates: start: 20151113, end: 20151207
  10. ATROPINE SULFATE. [Concomitant]
     Active Substance: ATROPINE SULFATE
     Indication: ANAESTHETIC PREMEDICATION
     Route: 042
     Dates: start: 20151120, end: 20151120
  11. ZONEGRAN [Suspect]
     Active Substance: ZONISAMIDE
     Indication: EPILEPSY
     Dosage: 100 MG
     Route: 048
     Dates: start: 20110609, end: 2015
  12. DEPAKENE [Suspect]
     Active Substance: VALPROIC ACID
     Indication: EPILEPSY
     Dosage: 1000 MG
     Route: 048
     Dates: start: 20110609, end: 20151126
  13. DEPAKENE [Suspect]
     Active Substance: VALPROIC ACID
     Dosage: 1000 MG
     Route: 048
     Dates: start: 20151127, end: 20151208
  14. ELENTAL [Concomitant]
     Active Substance: AMINO ACIDS\CARBOHYDRATES\MINERALS\SOYBEAN OIL\VITAMINS
     Indication: NUTRITIONAL SUPPLEMENTATION
     Route: 048
     Dates: start: 20151121, end: 20151203
  15. SERENACE [Suspect]
     Active Substance: HALOPERIDOL
     Indication: SEDATIVE THERAPY
     Route: 030
     Dates: start: 20151125, end: 20151125
  16. MIDAZOLAM [Suspect]
     Active Substance: MIDAZOLAM\MIDAZOLAM HYDROCHLORIDE
     Indication: SEDATIVE THERAPY
     Dosage: 60 MG
     Route: 042
     Dates: start: 20151113, end: 20151118

REACTIONS (1)
  - Neuroleptic malignant syndrome [Recovering/Resolving]

NARRATIVE: CASE EVENT DATE: 20151125
